FAERS Safety Report 10063713 (Version 3)
Quarter: 2014Q4

REPORT INFORMATION
  Report Type: Spontaneous
  Country: US (occurrence: US)
  Receive Date: 20140407
  Receipt Date: 20141008
  Transmission Date: 20150528
  Serious: Yes (Other)
  Sender: FDA-Public Use
  Company Number: US-TEVA-473116USA

PATIENT
  Age: 82 Year
  Sex: Male
  Weight: 59.02 kg

DRUGS (8)
  1. PROVENTIL [Concomitant]
     Active Substance: ALBUTEROL
     Indication: EMPHYSEMA
  2. AZILECT [Suspect]
     Active Substance: RASAGILINE MESYLATE
     Indication: PARKINSON^S DISEASE
     Route: 048
     Dates: start: 20140220
  3. CARBIDOPA W/LEVODOPA [Concomitant]
     Active Substance: CARBIDOPA\LEVODOPA
     Indication: PARKINSON^S DISEASE
     Dosage: 25-100 MG
  4. ASMANEX [Concomitant]
     Active Substance: MOMETASONE FUROATE
     Indication: EMPHYSEMA
     Dosage: 440 MILLIGRAM DAILY;
  5. FLORADIL [Concomitant]
     Indication: EMPHYSEMA
     Dosage: 12 MICROGRAM DAILY;
  6. OXYGEN. [Concomitant]
     Active Substance: OXYGEN
     Indication: EMPHYSEMA
  7. FLONASE [Concomitant]
     Active Substance: FLUTICASONE PROPIONATE
     Indication: HYPERSENSITIVITY
  8. SPIRIVA [Concomitant]
     Active Substance: TIOTROPIUM BROMIDE MONOHYDRATE
     Indication: EMPHYSEMA

REACTIONS (6)
  - Drug ineffective [Unknown]
  - Tremor [Not Recovered/Not Resolved]
  - Throat irritation [Not Recovered/Not Resolved]
  - Visual impairment [Not Recovered/Not Resolved]
  - Tremor [Not Recovered/Not Resolved]
  - Sensation of foreign body [Not Recovered/Not Resolved]

NARRATIVE: CASE EVENT DATE: 20140220
